FAERS Safety Report 10298436 (Version 3)
Quarter: 2014Q3

REPORT INFORMATION
  Report Type: Spontaneous
  Country: CA (occurrence: CA)
  Receive Date: 20140711
  Receipt Date: 20140827
  Transmission Date: 20150326
  Serious: Yes (Other)
  Sender: FDA-Public Use
  Company Number: CA-PFIZER INC-2014189515

PATIENT
  Sex: Female

DRUGS (1)
  1. ADVIL [Suspect]
     Active Substance: IBUPROFEN
     Dosage: UNK
     Dates: end: 2014

REACTIONS (8)
  - Product physical issue [Unknown]
  - Oropharyngeal pain [Unknown]
  - Tremor [Not Recovered/Not Resolved]
  - Headache [Not Recovered/Not Resolved]
  - Fear [Not Recovered/Not Resolved]
  - Paranoia [Not Recovered/Not Resolved]
  - Choking [Recovered/Resolved]
  - Nightmare [Not Recovered/Not Resolved]
